FAERS Safety Report 5925412-6 (Version None)
Quarter: 2008Q4

REPORT INFORMATION
  Report Type: 
  Country: None (occurrence: None)
  Receive Date: 20081020
  Receipt Date: 20081020
  Transmission Date: 20090506
  Serious: No
  Sender: FDA-Public Use
  Company Number: None

PATIENT
  Sex: Female
  Weight: 58.9676 kg

DRUGS (1)
  1. FOSAMAX [Suspect]
     Indication: OSTEOPENIA
     Dosage: 1 WEEKLY

REACTIONS (4)
  - ARTHRALGIA [None]
  - DYSPEPSIA [None]
  - MUSCULOSKELETAL STIFFNESS [None]
  - MYALGIA [None]
